FAERS Safety Report 13434406 (Version 1)
Quarter: 2017Q2

REPORT INFORMATION
  Report Type: Spontaneous
  Country: US (occurrence: US)
  Receive Date: 20170413
  Receipt Date: 20170413
  Transmission Date: 20170830
  Serious: No
  Sender: FDA-Public Use
  Company Number: US-FERRINGPH-2016FE05977

PATIENT
  Age: 84 Year
  Sex: Male
  Weight: 165 kg

DRUGS (2)
  1. FIRMAGON [Suspect]
     Active Substance: DEGARELIX ACETATE
     Indication: PROSTATE CANCER STAGE IV
     Dosage: 240 MG, ONCE/SINGLE
     Route: 058
     Dates: start: 20160915
  2. FIRMAGON [Suspect]
     Active Substance: DEGARELIX ACETATE
     Dosage: 160 MG, MONTHLY
     Route: 058
     Dates: start: 20161015

REACTIONS (5)
  - Mental status changes [Recovering/Resolving]
  - Confusional state [Recovering/Resolving]
  - Product use issue [Unknown]
  - Fatigue [Recovering/Resolving]
  - Insomnia [Recovering/Resolving]

NARRATIVE: CASE EVENT DATE: 201610
